FAERS Safety Report 11760511 (Version 3)
Quarter: 2016Q2

REPORT INFORMATION
  Report Type: Spontaneous
  Country: US (occurrence: US)
  Receive Date: 20151120
  Receipt Date: 20160414
  Transmission Date: 20160815
  Serious: No
  Sender: FDA-Public Use
  Company Number: US-ASTRAZENECA-2015SF09694

PATIENT
  Sex: Male
  Weight: 83.9 kg

DRUGS (1)
  1. BYDUREON [Suspect]
     Active Substance: EXENATIDE
     Indication: TYPE 2 DIABETES MELLITUS
     Route: 058
     Dates: start: 2013

REACTIONS (7)
  - Injection site nodule [Recovered/Resolved with Sequelae]
  - Weight decreased [Unknown]
  - Injection site pain [Unknown]
  - Intentional product misuse [Unknown]
  - Product quality issue [Unknown]
  - Product packaging issue [Unknown]
  - Underdose [Unknown]
